FAERS Safety Report 4314610-3 (Version None)
Quarter: 2004Q1

REPORT INFORMATION
  Report Type: 
  Country: None (occurrence: None)
  Receive Date: 20040309
  Receipt Date: 20040220
  Transmission Date: 20041129
  Serious: Yes (Hospitalization)
  Sender: FDA-Public Use
  Company Number: L04-NLD-00853-01

PATIENT
  Age: 73 Year
  Sex: Female

DRUGS (4)
  1. CIPRAMIL (CITALOPRAM HYDROBROMIDE) [Suspect]
     Indication: DEPRESSION
     Dosage: 20 MG QD PO
     Route: 048
  2. PROPRANOLOL [Concomitant]
  3. OXAZEPAM [Concomitant]
  4. CARBASALATE CA (CARBASALATE CALCIUM) [Concomitant]

REACTIONS (5)
  - CONVULSION [None]
  - DIZZINESS [None]
  - GAIT DISTURBANCE [None]
  - HYPONATRAEMIA [None]
  - LOSS OF CONSCIOUSNESS [None]
